FAERS Safety Report 5397710-9 (Version None)
Quarter: 2007Q3

REPORT INFORMATION
  Report Type: 
  Country: None (occurrence: None)
  Receive Date: 20070723
  Receipt Date: 20070723
  Transmission Date: 20080115
  Serious: No
  Sender: FDA-Public Use
  Company Number: None

PATIENT
  Age: 32 Year
  Sex: Female
  Weight: 68.0396 kg

DRUGS (1)
  1. CEPHALEXIN [Suspect]
     Indication: PHARYNGITIS STREPTOCOCCAL
     Dosage: 500 MG  4 TIMES/DAY, 10 DAY  PO
     Route: 048
     Dates: start: 20070710, end: 20070719

REACTIONS (2)
  - SUNBURN [None]
  - URTICARIA [None]
